FAERS Safety Report 9344005 (Version 1)
Quarter: 2013Q2

REPORT INFORMATION
  Report Type: Spontaneous
  Country: GB (occurrence: None)
  Receive Date: 20130610
  Receipt Date: 20130610
  Transmission Date: 20140414
  Serious: Yes (Hospitalization, Disabling, Other)
  Sender: FDA-Public Use
  Company Number: 2013AP005681

PATIENT
  Age: 55 Year
  Sex: Female

DRUGS (9)
  1. ALENDRONATE [Suspect]
     Indication: PROPHYLAXIS
     Route: 048
     Dates: start: 200911, end: 20130516
  2. ALLOPURINOL [Concomitant]
  3. AMITRIPTYLINE (AMITRIPTYLINE) [Concomitant]
  4. ASPIRIN (ACETYLSALICYLIC ACID) [Concomitant]
  5. CANDESARTAN (CANDESARTAN) [Concomitant]
  6. CEFALEXIN (CEFALEXIN) [Concomitant]
  7. FUROSEMIDE (FUROSEMIDE) [Concomitant]
  8. PREDNISOLONE (PREDNISOLONE) [Concomitant]
  9. PROGRAF (TACROLIMUS) [Concomitant]

REACTIONS (3)
  - Atypical femur fracture [None]
  - Pain in extremity [None]
  - Weight bearing difficulty [None]
